FAERS Safety Report 8338310-8 (Version None)
Quarter: 2012Q2

REPORT INFORMATION
  Report Type: 
  Country: None (occurrence: None)
  Receive Date: 20120504
  Receipt Date: 20120424
  Transmission Date: 20120825
  Serious: Yes (Death, Hospitalization)
  Sender: FDA-Public Use
  Company Number: BE-ACTELION-A-CH2012-64597

PATIENT
  Sex: Female
  Weight: 46 kg

DRUGS (7)
  1. SINTROM [Concomitant]
  2. LISINOPRIL [Concomitant]
  3. AKTON [Concomitant]
  4. DIVIVA [Concomitant]
  5. REDOMEX [Concomitant]
  6. FENOGAL [Concomitant]
  7. TRACLEER [Suspect]
     Indication: PULMONARY ARTERIAL HYPERTENSION
     Dosage: 125 MG, UNK
     Route: 048
     Dates: start: 20100210, end: 20110708

REACTIONS (3)
  - FALL [None]
  - INTERNATIONAL NORMALISED RATIO INCREASED [None]
  - HAEMORRHAGE [None]
